FAERS Safety Report 21921242 (Version 1)
Quarter: 2023Q1

REPORT INFORMATION
  Report Type: Spontaneous
  Country: US (occurrence: None)
  Receive Date: 20230120
  Receipt Date: 20230120
  Transmission Date: 20230417
  Serious: Yes (Hospitalization)
  Sender: FDA-Public Use
  Company Number: None

PATIENT
  Age: 66 Year
  Sex: Female
  Weight: 77.5 kg

DRUGS (3)
  1. IPILIMUMAB [Suspect]
     Active Substance: IPILIMUMAB
     Indication: Glioblastoma multiforme
     Dosage: OTHER FREQUENCY : EVERY 3 WEEKS;?
     Route: 042
     Dates: start: 20190114, end: 20190319
  2. NIVOLUMAB [Suspect]
     Active Substance: NIVOLUMAB
     Indication: Glioblastoma multiforme
     Dates: start: 20190114, end: 20190422
  3. BEVACIZUMAB [Suspect]
     Active Substance: BEVACIZUMAB

REACTIONS (15)
  - Muscular weakness [None]
  - Fall [None]
  - Hypophagia [None]
  - Nausea [None]
  - Neurotoxicity [None]
  - Mental status changes [None]
  - Arthralgia [None]
  - Tendon rupture [None]
  - Tachycardia [None]
  - Hypertension [None]
  - Metabolic acidosis [None]
  - Urine ketone body present [None]
  - Starvation [None]
  - Urinary tract infection [None]
  - General physical health deterioration [None]

NARRATIVE: CASE EVENT DATE: 20190501
